FAERS Safety Report 5899276-3 (Version None)
Quarter: 2008Q3

REPORT INFORMATION
  Report Type: 
  Country: None (occurrence: None)
  Receive Date: 20080828
  Receipt Date: 20080502
  Transmission Date: 20090109
  Serious: Yes (Other)
  Sender: FDA-Public Use
  Company Number: CIP08000813

PATIENT

DRUGS (2)
  1. ASACOL [Suspect]
     Dosage: 2400 MG DAILY, ORAL
     Route: 048
  2. DRUG NOS() [Suspect]

REACTIONS (1)
  - RENAL FAILURE [None]
